FAERS Safety Report 10419773 (Version 3)
Quarter: 2015Q2

REPORT INFORMATION
  Report Type: Report from Study
  Country: NO (occurrence: NO)
  Receive Date: 20140829
  Receipt Date: 20150616
  Transmission Date: 20150821
  Serious: Yes (Other)
  Sender: FDA-Public Use
  Company Number: NO-ALEXION PHARMACEUTICALS INC.-A201403224

PATIENT

DRUGS (4)
  1. SOLIRIS [Suspect]
     Active Substance: ECULIZUMAB
     Indication: GLOMERULONEPHRITIS MEMBRANOPROLIFERATIVE
     Dosage: UNK
     Route: 042
     Dates: start: 2013, end: 201312
  2. SOLIRIS [Suspect]
     Active Substance: ECULIZUMAB
     Indication: OFF LABEL USE
     Dosage: 600 MG, QW
     Route: 042
     Dates: start: 20140620, end: 20140722
  3. SOLIRIS [Suspect]
     Active Substance: ECULIZUMAB
     Dosage: 600 MG, QW
     Route: 042
     Dates: start: 20141114
  4. SOLIRIS [Suspect]
     Active Substance: ECULIZUMAB
     Indication: PROTEINURIA
     Dosage: 600 MG, Q2W
     Route: 042
     Dates: start: 20140722

REACTIONS (2)
  - Haematuria [Recovered/Resolved]
  - Upper respiratory tract infection [Unknown]

NARRATIVE: CASE EVENT DATE: 20140801
